FAERS Safety Report 9731816 (Version 1)
Quarter: 2013Q4

REPORT INFORMATION
  Report Type: Spontaneous
  Country: GB (occurrence: GB)
  Receive Date: 20131204
  Receipt Date: 20131204
  Transmission Date: 20140711
  Serious: Yes (Death)
  Sender: FDA-Public Use
  Company Number: GB-BEH-2013039196

PATIENT
  Age: 70 Year
  Sex: Male

DRUGS (6)
  1. INTRAVENOUS IMMUNOGLOBULIN [Suspect]
     Indication: MYASTHENIA GRAVIS
  2. PYRIDOSTIGMINE [Concomitant]
     Indication: MYASTHENIA GRAVIS
  3. INTRAVENOUS HEPARIN [Concomitant]
     Indication: PULMONARY EMBOLISM
  4. STEROIDS [Concomitant]
  5. RITUXIMAB [Concomitant]
  6. PENICILLIN G [Concomitant]

REACTIONS (1)
  - Drug ineffective for unapproved indication [Fatal]
